FAERS Safety Report 5568797-5 (Version None)
Quarter: 2007Q4

REPORT INFORMATION
  Report Type: 
  Country: None (occurrence: None)
  Receive Date: 20071220
  Receipt Date: 20070123
  Transmission Date: 20080405
  Serious: No
  Sender: FDA-Public Use
  Company Number: A0635531A

PATIENT
  Age: 81 Year
  Sex: Male
  Weight: 84.1 kg

DRUGS (5)
  1. AVODART [Suspect]
     Indication: BENIGN PROSTATIC HYPERPLASIA
     Dosage: .5MG PER DAY
     Route: 048
     Dates: start: 20060901
  2. TERAZOSIN HCL [Suspect]
     Indication: BENIGN PROSTATIC HYPERPLASIA
     Dosage: 5MG PER DAY
     Route: 048
  3. PRILOSEC [Concomitant]
  4. LISINOPRIL [Concomitant]
  5. ROBINUL [Concomitant]

REACTIONS (3)
  - ALOPECIA [None]
  - DRUG INEFFECTIVE [None]
  - POLLAKIURIA [None]
